FAERS Safety Report 8246946-8 (Version None)
Quarter: 2012Q1

REPORT INFORMATION
  Report Type: 
  Country: None (occurrence: None)
  Receive Date: 20120327
  Receipt Date: 20120323
  Transmission Date: 20120608
  Serious: Yes (Death)
  Sender: FDA-Public Use
  Company Number: ADR-2011-10256

PATIENT
  Sex: Male

DRUGS (1)
  1. LIORESAL [Suspect]
     Indication: MUSCLE SPASTICITY
     Dosage: 1163 MCG, DAILY, INTRATHECAL
     Route: 037

REACTIONS (1)
  - PRIMARY PROGRESSIVE MULTIPLE SCLEROSIS [None]
